FAERS Safety Report 16399249 (Version 1)
Quarter: 2019Q2

REPORT INFORMATION
  Report Type: Spontaneous
  Country: US (occurrence: US)
  Receive Date: 20190501
  Receipt Date: 20190501
  Transmission Date: 20190711
  Serious: No
  Sender: FDA-Public Use
  Company Number: None

PATIENT
  Age: 58 Year
  Sex: Female

DRUGS (1)
  1. TEMOZOLOMIDE CAP 140MG CAP [Suspect]
     Active Substance: TEMOZOLOMIDE
     Dates: start: 20181031

REACTIONS (1)
  - Fatigue [None]
